FAERS Safety Report 6395220-3 (Version None)
Quarter: 2009Q4

REPORT INFORMATION
  Report Type: 
  Country: None (occurrence: None)
  Receive Date: 20091006
  Receipt Date: 20090929
  Transmission Date: 20100525
  Serious: Yes (Death)
  Sender: FDA-Public Use
  Company Number: SPV1-2009-01925

PATIENT
  Sex: Female

DRUGS (1)
  1. FOSRENOL [Suspect]
     Dosage: ORAL
     Route: 048

REACTIONS (1)
  - CARDIAC ARREST [None]
